FAERS Safety Report 24213206 (Version 1)
Quarter: 2024Q3

REPORT INFORMATION
  Report Type: Spontaneous
  Country: US (occurrence: None)
  Receive Date: 20240814
  Receipt Date: 20240814
  Transmission Date: 20241016
  Serious: Yes (Hospitalization)
  Sender: Public
  Company Number: None

PATIENT
  Age: 56 Year
  Sex: Male

DRUGS (9)
  1. OPSUMIT [Suspect]
     Active Substance: MACITENTAN
     Indication: Pulmonary arterial hypertension
     Dosage: FREQUENCY : DAILY;?
     Route: 048
     Dates: start: 20240205
  2. SILDENAFIL [Concomitant]
     Active Substance: SILDENAFIL
  3. COLCHICINE [Concomitant]
     Active Substance: COLCHICINE
  4. DILTIAZEM [Concomitant]
     Active Substance: DILTIAZEM
  5. THIAMINE HYDROCHLORIDE [Concomitant]
     Active Substance: THIAMINE HYDROCHLORIDE
  6. VITAMINS [Concomitant]
     Active Substance: VITAMINS
  7. VALPROIC ACID [Concomitant]
     Active Substance: VALPROIC ACID
  8. SPIRONOLACTONE [Concomitant]
     Active Substance: SPIRONOLACTONE
  9. TORSEMIDE [Concomitant]
     Active Substance: TORSEMIDE

REACTIONS (5)
  - Tachycardia [None]
  - Pulmonary hypertension [None]
  - Cardiac failure [None]
  - Drug withdrawal syndrome [None]
  - Alcohol withdrawal syndrome [None]

NARRATIVE: CASE EVENT DATE: 20240801
